FAERS Safety Report 17122644 (Version 1)
Quarter: 2019Q4

REPORT INFORMATION
  Report Type: Spontaneous
  Country: US (occurrence: US)
  Receive Date: 20191206
  Receipt Date: 20191206
  Transmission Date: 20200122
  Serious: No
  Sender: FDA-Public Use
  Company Number: US-ROCHE-2410645

PATIENT
  Sex: Female
  Weight: 51.76 kg

DRUGS (1)
  1. OCREVUS [Suspect]
     Active Substance: OCRELIZUMAB
     Indication: RELAPSING MULTIPLE SCLEROSIS
     Route: 065
     Dates: start: 201905

REACTIONS (7)
  - Nausea [Recovered/Resolved]
  - Dry mouth [Recovered/Resolved]
  - Abdominal discomfort [Unknown]
  - Flatulence [Unknown]
  - Dizziness [Recovered/Resolved]
  - Lacrimation increased [Not Recovered/Not Resolved]
  - Irritability [Not Recovered/Not Resolved]
